FAERS Safety Report 4455786-7 (Version None)
Quarter: 2004Q3

REPORT INFORMATION
  Report Type: 
  Country: None (occurrence: None)
  Receive Date: 20040917
  Receipt Date: 20040908
  Transmission Date: 20050211
  Serious: Yes (Death, Hospitalization)
  Sender: FDA-Public Use
  Company Number: SE-JNJFOC-20040903140

PATIENT
  Age: 59 Year
  Sex: Male

DRUGS (2)
  1. IBUPROFEN [Suspect]
     Indication: PYREXIA
     Dosage: APPROXIMATELY 2 G PER DAY
     Dates: start: 20040102, end: 20040103
  2. ARCOXIA [Suspect]
     Indication: ARTHRITIS
     Dosage: 90 MG, 1 IN 1 DAY, ORAL
     Route: 048
     Dates: start: 20031215, end: 20040101

REACTIONS (16)
  - AORTIC STENOSIS [None]
  - ARRHYTHMIA [None]
  - BLOOD GLUCOSE INCREASED [None]
  - CARDIOMEGALY [None]
  - CORONARY ARTERY STENOSIS [None]
  - HEPATIC HAEMORRHAGE [None]
  - HEPATIC STEATOSIS [None]
  - MYOCARDIAL INFARCTION [None]
  - PAIN [None]
  - PLATELET COUNT DECREASED [None]
  - PULMONARY HAEMORRHAGE [None]
  - RENAL HAEMORRHAGE [None]
  - SHOCK [None]
  - STEVENS-JOHNSON SYNDROME [None]
  - VOMITING [None]
  - WHITE BLOOD CELL COUNT INCREASED [None]
